FAERS Safety Report 23345256 (Version 1)
Quarter: 2023Q4

REPORT INFORMATION
  Report Type: Spontaneous
  Country: FR (occurrence: FR)
  Receive Date: 20231228
  Receipt Date: 20231228
  Transmission Date: 20240110
  Serious: Yes (Hospitalization, Other)
  Sender: FDA-Public Use
  Company Number: FR-AFSSAPS-AVPA2023000825

PATIENT
  Age: 38 Year
  Sex: Male

DRUGS (3)
  1. PREGABALIN [Suspect]
     Active Substance: PREGABALIN
     Indication: Product used for unknown indication
     Dosage: UNK (10 G?LULES DE 300MG PAR JOUR (ENTRE 7 ET 14 CP SELON LA TAILLE DE LA PLAQUETTE))
     Route: 048
     Dates: start: 2009
  2. COCAINE [Suspect]
     Active Substance: COCAINE
     Indication: Product used for unknown indication
     Dosage: UNK UNK, ONCE A DAY ( (1 ? 2G PAR JOUR))
     Route: 045
     Dates: start: 2019
  3. RIVOTRIL [Suspect]
     Active Substance: CLONAZEPAM
     Indication: Product used for unknown indication
     Dosage: UNK (10 COMPRIM?S PAR JOUR DE 2 MG)
     Route: 048
     Dates: start: 2009

REACTIONS (2)
  - Drug detoxification [Not Recovered/Not Resolved]
  - Drug dependence [Not Recovered/Not Resolved]

NARRATIVE: CASE EVENT DATE: 20230405
